FAERS Safety Report 7479013-1 (Version None)
Quarter: 2011Q2

REPORT INFORMATION
  Report Type: 
  Country: None (occurrence: None)
  Receive Date: 20110513
  Receipt Date: 20110509
  Transmission Date: 20111010
  Serious: Yes (Other)
  Sender: FDA-Public Use
  Company Number: US-SANOFI-AVENTIS-2011SA029026

PATIENT
  Age: 76 Year
  Sex: Female

DRUGS (9)
  1. LANTUS [Suspect]
     Indication: TYPE 2 DIABETES MELLITUS
     Dosage: DOSE:55 UNIT(S)
     Route: 058
     Dates: start: 20090101
  2. HUMALOG [Concomitant]
     Dosage: SLIDING SCALE
  3. PLAVIX [Concomitant]
  4. ATENOLOL [Concomitant]
  5. VITAMIN C [Concomitant]
  6. LANTUS [Suspect]
     Indication: TYPE 2 DIABETES MELLITUS
     Dates: start: 20090101
  7. VICODIN [Concomitant]
  8. FERROUS SULFATE TAB [Concomitant]
  9. ARANESP [Concomitant]

REACTIONS (4)
  - BLOOD GLUCOSE INCREASED [None]
  - BLOOD GLUCOSE DECREASED [None]
  - INTRACRANIAL ANEURYSM [None]
  - HEADACHE [None]
